FAERS Safety Report 7405087-X (Version None)
Quarter: 2011Q1

REPORT INFORMATION
  Report Type: 
  Country: None (occurrence: None)
  Receive Date: 20110331
  Receipt Date: 20100726
  Transmission Date: 20110831
  Serious: Yes (Hospitalization)
  Sender: FDA-Public Use
  Company Number: 2011MA002883

PATIENT
  Age: 49 Year
  Sex: Female

DRUGS (12)
  1. TRASTUZUMAB (TRASTUZUMAB) [Suspect]
     Indication: BREAST CANCER
     Dosage: 450 MG; ;IV
     Route: 042
     Dates: start: 20091020, end: 20091020
  2. DOXORUBICIN [Concomitant]
  3. DOMPERIDONE [Concomitant]
  4. PACLITAXEL [Suspect]
     Indication: BREAST CANCER
     Dosage: 280 MG; Q2W; IV
     Route: 042
     Dates: start: 20091013, end: 20091027
  5. GRANISETRON HCL [Concomitant]
  6. DEXAMETHASONE [Concomitant]
  7. NEUPOGEN [Concomitant]
  8. PIRITON [Concomitant]
  9. DEXAMETHASONE [Concomitant]
  10. PYRIDOXINE [Concomitant]
  11. CYCLOPHOSPHAMIDE [Concomitant]
  12. PREDNISOLONE [Concomitant]

REACTIONS (3)
  - FLUSHING [None]
  - HYPERSENSITIVITY [None]
  - DRUG INTERACTION [None]
